FAERS Safety Report 11104957 (Version 1)
Quarter: 2015Q2

REPORT INFORMATION
  Report Type: Report from Study
  Country: US (occurrence: US)
  Receive Date: 20150511
  Receipt Date: 20150511
  Transmission Date: 20150821
  Serious: Yes (Death, Hospitalization)
  Sender: FDA-Public Use
  Company Number: US-ACTELION-A-US2014-109232

PATIENT
  Age: 75 Year
  Sex: Female

DRUGS (4)
  1. MACITENTAN [Suspect]
     Active Substance: MACITENTAN
     Indication: PULMONARY ARTERIAL HYPERTENSION
     Dosage: 10 MG, QD
     Route: 048
  2. ADCIRCA [Concomitant]
     Active Substance: TADALAFIL
  3. RIOCIGUAT [Concomitant]
     Active Substance: RIOCIGUAT
  4. TREPROSTINIL [Concomitant]
     Active Substance: TREPROSTINIL

REACTIONS (4)
  - Lung infection [Recovered/Resolved]
  - Bronchitis [Unknown]
  - Death [Fatal]
  - Weight increased [Unknown]

NARRATIVE: CASE EVENT DATE: 20150430
